FAERS Safety Report 6225653-7 (Version None)
Quarter: 2009Q2

REPORT INFORMATION
  Report Type: 
  Country: None (occurrence: None)
  Receive Date: 20090612
  Receipt Date: 20090429
  Transmission Date: 20091009
  Serious: No
  Sender: FDA-Public Use
  Company Number: US-ABBOTT-09P-163-0570755-00

PATIENT
  Sex: Female
  Weight: 56.75 kg

DRUGS (8)
  1. HUMIRA [Suspect]
     Indication: URTICARIA CHRONIC
     Route: 058
     Dates: start: 20080702, end: 20081201
  2. HUMIRA [Suspect]
     Route: 058
     Dates: start: 20090101, end: 20090301
  3. HUMIRA [Suspect]
     Route: 058
     Dates: start: 20090401
  4. ZYRTEC-D 12 HOUR [Concomitant]
     Indication: URTICARIA CHRONIC
     Route: 048
  5. ZYRTEC [Concomitant]
     Indication: URTICARIA CHRONIC
     Dosage: 4 IN 1 DAYS AS NEEDED
     Route: 048
  6. COLCHICINE [Concomitant]
     Indication: URTICARIA CHRONIC
     Route: 048
  7. SYNTHROID [Concomitant]
     Indication: HYPOTHYROIDISM
     Route: 048
  8. PREMARIN [Concomitant]
     Indication: HORMONE REPLACEMENT THERAPY
     Route: 048

REACTIONS (4)
  - ECZEMA [None]
  - PRURITUS [None]
  - RASH [None]
  - SKIN EXFOLIATION [None]
